FAERS Safety Report 22399314 (Version 1)
Quarter: 2023Q2

REPORT INFORMATION
  Report Type: Spontaneous
  Country: GB (occurrence: GB)
  Receive Date: 20230602
  Receipt Date: 20230602
  Transmission Date: 20230722
  Serious: Yes (Other)
  Sender: FDA-Public Use
  Company Number: GB-AstraZeneca-2023A119578

PATIENT

DRUGS (4)
  1. ZOLADEX [Suspect]
     Active Substance: GOSERELIN ACETATE
     Indication: Breast cancer metastatic
     Dosage: UNK
     Route: 058
  2. ZOLADEX [Suspect]
     Active Substance: GOSERELIN ACETATE
     Indication: Breast cancer metastatic
     Dosage: UNK
     Route: 065
  3. IBRANCE [Concomitant]
     Active Substance: PALBOCICLIB
     Indication: Product used for unknown indication
     Dosage: UNK
     Route: 065
  4. CAPECITABINE [Concomitant]
     Active Substance: CAPECITABINE
     Indication: Product used for unknown indication
     Dosage: UNK
     Route: 065

REACTIONS (2)
  - Malignant neoplasm progression [Unknown]
  - Fatigue [Unknown]
